FAERS Safety Report 17066805 (Version 1)
Quarter: 2019Q4

REPORT INFORMATION
  Report Type: Report from Study
  Country: US (occurrence: US)
  Receive Date: 20191122
  Receipt Date: 20191122
  Transmission Date: 20200122
  Serious: Yes (Hospitalization, Other)
  Sender: FDA-Public Use
  Company Number: US-GLAXOSMITHKLINE-US2019GSK205266

PATIENT
  Age: 37 Year
  Sex: Female

DRUGS (1)
  1. EPOPROSTENOL SODIUM. [Suspect]
     Active Substance: EPOPROSTENOL SODIUM
     Indication: PULMONARY ARTERIAL HYPERTENSION
     Dosage: UNK
     Route: 042

REACTIONS (9)
  - Administration site cellulitis [Recovered/Resolved]
  - Hyperthyroidism [Recovered/Resolved]
  - Weight decreased [Recovered/Resolved]
  - Lid lag [Unknown]
  - Tachycardia [Recovered/Resolved]
  - Goitre [Recovered/Resolved]
  - Vascular access site infection [Recovered/Resolved]
  - Basedow^s disease [Recovered/Resolved]
  - Diarrhoea [Recovered/Resolved]
